FAERS Safety Report 9154269 (Version 1)
Quarter: 2013Q1

REPORT INFORMATION
  Report Type: Spontaneous
  Country: US (occurrence: None)
  Receive Date: 20130306
  Receipt Date: 20130306
  Transmission Date: 20140127
  Serious: Yes (Other)
  Sender: FDA-Public Use
  Company Number: None

PATIENT
  Age: 48 Year
  Sex: Male

DRUGS (1)
  1. TAMIFLU OSELTAMIVIR PHOSPHATE [Suspect]
     Dates: start: 20130123, end: 20130123

REACTIONS (3)
  - Vomiting [None]
  - Neck pain [None]
  - Hallucination, visual [None]
